FAERS Safety Report 18582637 (Version 3)
Quarter: 2020Q4

REPORT INFORMATION
  Report Type: Spontaneous
  Country: IT (occurrence: IT)
  Receive Date: 20201205
  Receipt Date: 20201231
  Transmission Date: 20210114
  Serious: Yes (Life-Threatening)
  Sender: FDA-Public Use
  Company Number: IT-ACCORD-209773

PATIENT
  Age: 66 Year
  Sex: Female

DRUGS (14)
  1. LASIX [Concomitant]
     Active Substance: FUROSEMIDE
  2. AMIODARONE [Concomitant]
     Active Substance: AMIODARONE
  3. TACROLIMUS. [Concomitant]
     Active Substance: TACROLIMUS
  4. ADENURIC [Concomitant]
     Active Substance: FEBUXOSTAT
  5. TORVAST [Concomitant]
     Active Substance: ATORVASTATIN
  6. AMLODIPINE [Concomitant]
     Active Substance: AMLODIPINE BESYLATE
  7. EPREX [Concomitant]
     Active Substance: ERYTHROPOIETIN
  8. MYCOPHENOLIC ACID ACCORD [Suspect]
     Active Substance: MYCOPHENOLIC ACID
     Indication: PRODUCT USED FOR UNKNOWN INDICATION
     Dosage: STRENGTH-360 MG
     Route: 048
     Dates: start: 20200708, end: 20200715
  9. BISOPROLOL [Concomitant]
     Active Substance: BISOPROLOL
  10. OMEPRAZOLE. [Concomitant]
     Active Substance: OMEPRAZOLE
  11. ZOLPIDEM [Concomitant]
     Active Substance: ZOLPIDEM TARTRATE
  12. DIBASE [Concomitant]
     Active Substance: CHOLECALCIFEROL
  13. INSULIN [Concomitant]
     Active Substance: INSULIN NOS
  14. SINTROM [Concomitant]
     Active Substance: ACENOCOUMAROL

REACTIONS (3)
  - Diarrhoea [Recovered/Resolved]
  - Asthenia [Recovered/Resolved]
  - Hyponatraemic syndrome [Recovered/Resolved]

NARRATIVE: CASE EVENT DATE: 20200715
